FAERS Safety Report 17594310 (Version 1)
Quarter: 2020Q1

REPORT INFORMATION
  Report Type: Report from Study
  Country: US (occurrence: US)
  Receive Date: 20200327
  Receipt Date: 20200327
  Transmission Date: 20200409
  Serious: Yes (Hospitalization)
  Sender: FDA-Public Use
  Company Number: US-EISAI MEDICAL RESEARCH-EC-2019-065837

PATIENT
  Age: 56 Year
  Sex: Female

DRUGS (4)
  1. LENVIMA [Suspect]
     Active Substance: LENVATINIB
     Indication: ENDOMETRIAL CANCER
     Route: 048
     Dates: start: 20191112, end: 2019
  2. LENVIMA [Suspect]
     Active Substance: LENVATINIB
     Dosage: DOES NOT TAKE LENVIMA ON DAYS WHEN SHE RECEIVES KEYTRUDA
     Route: 048
     Dates: start: 20191224, end: 20200301
  3. KEYTRUDA [Concomitant]
     Active Substance: PEMBROLIZUMAB
  4. LENVIMA [Suspect]
     Active Substance: LENVATINIB
     Route: 048
     Dates: start: 20200317

REACTIONS (15)
  - Pneumonia [Not Recovered/Not Resolved]
  - Glossitis [Not Recovered/Not Resolved]
  - Headache [Recovered/Resolved]
  - Hypertension [Not Recovered/Not Resolved]
  - Dysphonia [Not Recovered/Not Resolved]
  - Lung disorder [Unknown]
  - Diarrhoea [Not Recovered/Not Resolved]
  - Epistaxis [Recovered/Resolved]
  - Haemoptysis [Recovered/Resolved]
  - Thyroid function test abnormal [Not Recovered/Not Resolved]
  - Blister [Recovered/Resolved]
  - Stomatitis [Recovered/Resolved]
  - Pancreatic disorder [Not Recovered/Not Resolved]
  - Nausea [Not Recovered/Not Resolved]
  - Musculoskeletal pain [Not Recovered/Not Resolved]

NARRATIVE: CASE EVENT DATE: 2019
